FAERS Safety Report 20279251 (Version 3)
Quarter: 2022Q3

REPORT INFORMATION
  Report Type: Report from Study
  Country: CO (occurrence: CO)
  Receive Date: 20220103
  Receipt Date: 20220627
  Transmission Date: 20221027
  Serious: Yes (Other)
  Sender: FDA-Public Use
  Company Number: CO-NOVARTISPH-NVSC2021CO299915

PATIENT
  Sex: Male

DRUGS (2)
  1. OMNITROPE [Suspect]
     Active Substance: SOMATROPIN
     Indication: Growth hormone deficiency
     Dosage: 1.3 MG, QD, (CONCENTRATION: OMNITROPE 10 MG / 1.5 ML)
     Route: 058
     Dates: start: 20211227
  2. OMNITROPE [Suspect]
     Active Substance: SOMATROPIN
     Dosage: 1.4 MG, QD, (CONCENTRATION: OMNITROPE 15 MG / 1.5 ML)
     Route: 058

REACTIONS (2)
  - Intellectual disability [Unknown]
  - Device dispensing error [Unknown]
